FAERS Safety Report 17725933 (Version 3)
Quarter: 2020Q4

REPORT INFORMATION
  Report Type: Report from Study
  Country: US (occurrence: US)
  Receive Date: 20200429
  Receipt Date: 20201022
  Transmission Date: 20210113
  Serious: Yes (Other)
  Sender: FDA-Public Use
  Company Number: NVSC2020US116489

PATIENT
  Sex: Female

DRUGS (2)
  1. ENTRESTO [Suspect]
     Active Substance: SACUBITRIL\VALSARTAN
     Indication: PRODUCT USED FOR UNKNOWN INDICATION
     Dosage: 50 MG (24/26 MG), BID
     Route: 048
  2. ENTRESTO [Suspect]
     Active Substance: SACUBITRIL\VALSARTAN
     Dosage: 0.5 DF, QD
     Route: 048

REACTIONS (7)
  - Somnolence [Recovering/Resolving]
  - Angioedema [Recovered/Resolved]
  - COVID-19 [Recovering/Resolving]
  - Hypersensitivity [Unknown]
  - Wrong technique in product usage process [Unknown]
  - Asthenia [Recovering/Resolving]
  - Influenza like illness [Recovering/Resolving]
